FAERS Safety Report 4504246-3 (Version None)
Quarter: 2004Q4

REPORT INFORMATION
  Report Type: 
  Country: None (occurrence: None)
  Receive Date: 20041116
  Receipt Date: 20041116
  Transmission Date: 20050328
  Serious: Yes (Hospitalization)
  Sender: FDA-Public Use
  Company Number: None

PATIENT
  Age: 72 Year
  Sex: Male
  Weight: 76.6579 kg

DRUGS (10)
  1. INSULIN PUMP [Suspect]
     Indication: DIABETES MELLITUS
  2. LORATADINE [Concomitant]
  3. SERTRALINE HCL [Concomitant]
  4. METOPROLOL TARTRATE [Concomitant]
  5. SIMVASTATIN [Concomitant]
  6. FOSINOPRIL NA [Concomitant]
  7. ACCU-CHEK COMFORT CV (GLUCOSE) TEST STRIP [Concomitant]
  8. FOLIC ACID [Concomitant]
  9. ALCOHOL PREP PAD [Concomitant]
  10. LANCET, TECHLITE [Concomitant]

REACTIONS (3)
  - DYSARTHRIA [None]
  - HYPOGLYCAEMIA [None]
  - TRANSIENT ISCHAEMIC ATTACK [None]
